FAERS Safety Report 25041280 (Version 2)
Quarter: 2025Q1

REPORT INFORMATION
  Report Type: Spontaneous
  Country: US (occurrence: US)
  Receive Date: 20250305
  Receipt Date: 20250314
  Transmission Date: 20250409
  Serious: Yes (Hospitalization, Other)
  Sender: AKEBIA THERAPEUTICS
  Company Number: US-AKEBIA THERAPEUTICS, INC.-US-AKEB-25-000103

PATIENT
  Age: 76 Year
  Sex: Female

DRUGS (2)
  1. VADADUSTAT [Suspect]
     Active Substance: VADADUSTAT
     Indication: Chronic kidney disease
     Dosage: 2 DOSAGE FORM, QD
     Route: 048
     Dates: start: 20250216
  2. VADADUSTAT [Suspect]
     Active Substance: VADADUSTAT
     Indication: Nephrogenic anaemia

REACTIONS (3)
  - COVID-19 [Unknown]
  - Dementia [Recovered/Resolved]
  - Confusional state [Recovered/Resolved]

NARRATIVE: CASE EVENT DATE: 20250226
